FAERS Safety Report 6763741-7 (Version None)
Quarter: 2010Q2

REPORT INFORMATION
  Report Type: 
  Country: None (occurrence: None)
  Receive Date: 20100608
  Receipt Date: 20100524
  Transmission Date: 20101027
  Serious: Yes (Hospitalization)
  Sender: FDA-Public Use
  Company Number: 2010S1000242

PATIENT
  Sex: Male

DRUGS (3)
  1. ROXICODONE [Suspect]
     Indication: PAIN
     Dosage: PO
     Route: 048
  2. OXYCONTIN [Suspect]
     Dosage: PO
     Route: 048
  3. XANAX [Suspect]
     Dosage: PO
     Route: 048

REACTIONS (4)
  - INAPPROPRIATE SCHEDULE OF DRUG ADMINISTRATION [None]
  - INCORRECT DOSE ADMINISTERED [None]
  - PAIN [None]
  - STAPHYLOCOCCAL INFECTION [None]
